FAERS Safety Report 17484088 (Version 1)
Quarter: 2020Q1

REPORT INFORMATION
  Report Type: Spontaneous
  Country: US (occurrence: US)
  Receive Date: 20200219
  Receipt Date: 20200219
  Transmission Date: 20200409
  Serious: No
  Sender: FDA-Public Use
  Company Number: None

PATIENT
  Age: 74 Year
  Sex: Male

DRUGS (7)
  1. METFORMIN HYDROCHLORIDE E [Concomitant]
  2. TAMSULOSIN HYDROCHLORIDE. [Concomitant]
     Active Substance: TAMSULOSIN HYDROCHLORIDE
  3. INLYTA [Suspect]
     Active Substance: AXITINIB
     Indication: NEOPLASM MALIGNANT
     Route: 048
     Dates: start: 20200123
  4. LINSINOPRIL [Concomitant]
     Active Substance: LISINOPRIL
  5. CALCIUM [Concomitant]
     Active Substance: CALCIUM
  6. KEYTRUDA [Concomitant]
     Active Substance: PEMBROLIZUMAB
  7. ATROVASTATIN [Concomitant]
     Active Substance: ATORVASTATIN CALCIUM

REACTIONS (1)
  - Cerebral haemorrhage [None]

NARRATIVE: CASE EVENT DATE: 20200218
